FAERS Safety Report 16784871 (Version 1)
Quarter: 2019Q3

REPORT INFORMATION
  Report Type: Spontaneous
  Country: FR (occurrence: FR)
  Receive Date: 20190909
  Receipt Date: 20190909
  Transmission Date: 20191005
  Serious: Yes (Hospitalization)
  Sender: FDA-Public Use
  Company Number: FR-TEVA-2019-FR-1103313

PATIENT
  Age: 79 Year
  Sex: Female
  Weight: 72.5 kg

DRUGS (1)
  1. BISOPROLOL (FUMARATE DE) [Suspect]
     Active Substance: BISOPROLOL FUMARATE
     Indication: HYPERTENSION
     Dosage: 12.5 MG
     Route: 048
     Dates: start: 20190512

REACTIONS (2)
  - Bronchospasm [Recovering/Resolving]
  - Lung disorder [Recovered/Resolved]

NARRATIVE: CASE EVENT DATE: 201906
